FAERS Safety Report 15029463 (Version 1)
Quarter: 2018Q2

REPORT INFORMATION
  Report Type: Spontaneous
  Country: FI (occurrence: FI)
  Receive Date: 20180619
  Receipt Date: 20180619
  Transmission Date: 20180711
  Serious: Yes (Life-Threatening)
  Sender: FDA-Public Use
  Company Number: FI-009507513-1806FIN006351

PATIENT
  Age: 62 Year
  Sex: Male

DRUGS (3)
  1. KEYTRUDA [Suspect]
     Active Substance: PEMBROLIZUMAB
     Indication: LUNG NEOPLASM MALIGNANT
     Dosage: 150 MG X2
     Route: 042
     Dates: start: 20180326, end: 20180416
  2. AKYNZEO (NETUPITANT (+) PALONOSETRON HYDROCHLORIDE) [Concomitant]
     Route: 048
  3. SOMAC [Concomitant]
     Active Substance: PANTOPRAZOLE SODIUM
     Dosage: 20 MG, DAILY
     Route: 048

REACTIONS (1)
  - Gastric ulcer perforation [Recovering/Resolving]

NARRATIVE: CASE EVENT DATE: 20180430
